FAERS Safety Report 8900455 (Version 1)
Quarter: 2012Q4

REPORT INFORMATION
  Report Type: 
  Country: CA (occurrence: CA)
  Receive Date: 20121109
  Receipt Date: 20121109
  Transmission Date: 20130627
  Serious: Yes (Other)
  Sender: FDA-Public Use
  Company Number: PHHY2008CA24298

PATIENT
  Age: 53 Year
  Sex: Female

DRUGS (1)
  1. SANDOSTATIN LAR [Suspect]
     Indication: INSULINOMA
     Dosage: 30 mg every 4 weeks
     Route: 030
     Dates: start: 20071227, end: 20081030

REACTIONS (11)
  - Thyroid disorder [Unknown]
  - Pancreatic disorder [Unknown]
  - Insulinoma [Unknown]
  - Hypoglycaemia [Unknown]
  - Blood glucose fluctuation [Unknown]
  - Blood glucose increased [Unknown]
  - Blood pressure increased [Unknown]
  - Laceration [Unknown]
  - Heart rate increased [Unknown]
  - Headache [Unknown]
  - Diarrhoea [Unknown]
